FAERS Safety Report 4697184-7 (Version None)
Quarter: 2005Q2

REPORT INFORMATION
  Report Type: 
  Country: None (occurrence: None)
  Receive Date: 20050622
  Receipt Date: 20050608
  Transmission Date: 20051028
  Serious: Yes (Life-Threatening)
  Sender: FDA-Public Use
  Company Number: AU-JNJFOC-20050603807

PATIENT
  Age: 65 Year
  Sex: Female

DRUGS (9)
  1. TRAMADOL HCL [Suspect]
     Indication: SENSORY DISTURBANCE
     Route: 065
  2. KETAMINE [Suspect]
     Indication: SENSORY DISTURBANCE
     Dosage: TOTAL DOSE: 46ML.
     Route: 042
  3. VERAPAMIL HYDROCHLORIDE [Concomitant]
     Route: 065
  4. ALBUTEROL SULFATE HFA [Concomitant]
     Indication: PULMONARY INFARCTION
     Route: 065
  5. ALBUTEROL SULFATE HFA [Concomitant]
     Indication: PULMONARY EMBOLISM
     Route: 065
  6. PRAVASTATIN SODIUM [Concomitant]
     Route: 065
  7. OMEPRAZOLE [Concomitant]
     Route: 065
  8. ACETAMINOPHEN [Concomitant]
     Route: 065
  9. HEPARIN SODIUM [Concomitant]
     Route: 065

REACTIONS (6)
  - ACUTE PULMONARY OEDEMA [None]
  - BRADYPHRENIA [None]
  - HYPOXIA [None]
  - MENTAL IMPAIRMENT [None]
  - RESPIRATORY DEPRESSION [None]
  - RESPIRATORY FAILURE [None]
